FAERS Safety Report 21279291 (Version 2)
Quarter: 2022Q3

REPORT INFORMATION
  Report Type: Spontaneous
  Country: US (occurrence: None)
  Receive Date: 20220901
  Receipt Date: 20220913
  Transmission Date: 20221027
  Serious: Yes (Hospitalization)
  Sender: FDA-Public Use
  Company Number: US-ROCHE-3171052

PATIENT
  Sex: Male

DRUGS (1)
  1. CAPECITABINE [Suspect]
     Active Substance: CAPECITABINE
     Indication: Rectal cancer stage III
     Route: 048

REACTIONS (5)
  - Cardiac disorder [Unknown]
  - Carditis [Unknown]
  - Diarrhoea haemorrhagic [Unknown]
  - Hypotension [Unknown]
  - Drug hypersensitivity [Recovering/Resolving]
